FAERS Safety Report 8259058-4 (Version None)
Quarter: 2012Q2

REPORT INFORMATION
  Report Type: 
  Country: None (occurrence: None)
  Receive Date: 20120404
  Receipt Date: 20120321
  Transmission Date: 20120825
  Serious: Yes (Other)
  Sender: FDA-Public Use
  Company Number: FR-AMGEN-US224997

PATIENT
  Age: 36 Year
  Sex: Female
  Weight: 39 kg

DRUGS (1)
  1. ENBREL [Suspect]
     Dosage: 50 MG, QWK
     Dates: start: 20060715

REACTIONS (2)
  - EXPOSURE VIA FATHER [None]
  - RETAINED PLACENTA OR MEMBRANES [None]
